FAERS Safety Report 4822547-6 (Version None)
Quarter: 2005Q4

REPORT INFORMATION
  Report Type: 
  Country: None (occurrence: None)
  Receive Date: 20051104
  Receipt Date: 20051021
  Transmission Date: 20060501
  Serious: Yes (Other)
  Sender: FDA-Public Use
  Company Number: S05-UKI-04156-01

PATIENT
  Age: 42 Year
  Sex: Male

DRUGS (5)
  1. ESCITALOPRAM OXALATE [Suspect]
     Indication: DEPRESSION
     Dosage: 10 MG QD PO
     Route: 048
     Dates: start: 20050613, end: 20050901
  2. ESCITALOPRAM OXALATE [Suspect]
     Indication: DISEASE RECURRENCE
     Dosage: 10 MG QD PO
     Route: 048
     Dates: start: 20050613, end: 20050901
  3. ESCITALOPRAM OXALATE [Suspect]
     Indication: DEPRESSION
     Dosage: 20 MG QD PO
     Route: 048
     Dates: start: 20050901
  4. ESCITALOPRAM OXALATE [Suspect]
     Indication: DISEASE RECURRENCE
     Dosage: 20 MG QD PO
     Route: 048
     Dates: start: 20050901
  5. ETHANOL [Suspect]
     Dates: start: 20051015

REACTIONS (4)
  - AGITATION [None]
  - ALCOHOL USE [None]
  - DISSOCIATIVE FUGUE [None]
  - TREATMENT NONCOMPLIANCE [None]
